FAERS Safety Report 4635006-0 (Version None)
Quarter: 2005Q2

REPORT INFORMATION
  Report Type: 
  Country: None (occurrence: None)
  Receive Date: 20050411
  Receipt Date: 20050330
  Transmission Date: 20051028
  Serious: Yes (Other)
  Sender: FDA-Public Use
  Company Number: 2005052263

PATIENT
  Sex: Male

DRUGS (1)
  1. CELEBREX [Suspect]
     Indication: ILL-DEFINED DISORDER
     Dosage: ORAL
     Route: 048
     Dates: start: 20010101, end: 20030101

REACTIONS (7)
  - ANHEDONIA [None]
  - ANXIETY [None]
  - CARDIAC DISORDER [None]
  - EMOTIONAL DISTRESS [None]
  - FEAR [None]
  - MYOCARDIAL INFARCTION [None]
  - PAIN [None]
